FAERS Safety Report 6648196-5 (Version None)
Quarter: 2010Q1

REPORT INFORMATION
  Report Type: 
  Country: None (occurrence: None)
  Receive Date: 20100324
  Receipt Date: 20100311
  Transmission Date: 20100710
  Serious: Yes (Death)
  Sender: FDA-Public Use
  Company Number: US-BAYER-201013043BCC

PATIENT
  Age: 76 Year
  Sex: Female
  Weight: 91 kg

DRUGS (11)
  1. ASPIRIN [Suspect]
     Indication: DRUG USE FOR UNKNOWN INDICATION
     Dosage: TOTAL DAILY DOSE: 81 MG  UNIT DOSE: 81 MG
     Route: 048
  2. ANASTROZOLE [Suspect]
     Indication: BREAST CANCER
     Dosage: TOTAL DAILY DOSE: 1 MG  UNIT DOSE: 1 MG
     Route: 048
     Dates: start: 20060118
  3. NORVASC [Suspect]
     Indication: DRUG USE FOR UNKNOWN INDICATION
     Dosage: TOTAL DAILY DOSE: 10 MG  UNIT DOSE: 10 MG
     Route: 048
  4. GLIBENCLAMIDE [Suspect]
     Indication: DRUG USE FOR UNKNOWN INDICATION
     Dosage: TOTAL DAILY DOSE: 1.5 MG  UNIT DOSE: 1.5 MG
     Route: 048
  5. METFORMIN HCL [Suspect]
     Indication: DRUG USE FOR UNKNOWN INDICATION
     Dosage: TOTAL DAILY DOSE: 1700 MG  UNIT DOSE: 850 MG
     Route: 065
  6. HYDROCHLOROTHIAZIDE [Suspect]
     Indication: DRUG USE FOR UNKNOWN INDICATION
     Dosage: TOTAL DAILY DOSE: 12.5 MG  UNIT DOSE: 12.5 MG
     Route: 048
  7. CALCIUM WITH VITAMIN D [Suspect]
     Indication: OSTEOPOROSIS
     Dosage: TOTAL DAILY DOSE: 3 DF  UNIT DOSE: 1 DF
     Route: 048
  8. COZAAR [Suspect]
     Indication: DRUG USE FOR UNKNOWN INDICATION
     Dosage: TOTAL DAILY DOSE: 100 MG  UNIT DOSE: 100 MG
     Route: 065
  9. SYNTHROID [Suspect]
     Indication: DRUG USE FOR UNKNOWN INDICATION
     Route: 065
  10. BONIVA [Suspect]
     Indication: OSTEOPOROSIS
     Dosage: TOTAL DAILY DOSE: 150 MG  UNIT DOSE: 150 MG
     Route: 065
     Dates: start: 20060103
  11. MULTI-VITAMIN [Concomitant]
     Route: 065

REACTIONS (2)
  - CARDIAC ARREST [None]
  - SUDDEN DEATH [None]
